FAERS Safety Report 12617174 (Version 2)
Quarter: 2016Q3

REPORT INFORMATION
  Report Type: Spontaneous
  Country: US (occurrence: US)
  Receive Date: 20160803
  Receipt Date: 20160823
  Transmission Date: 20161109
  Serious: Yes (Other)
  Sender: FDA-Public Use
  Company Number: US-JNJCP-30000347242

PATIENT
  Sex: Female
  Weight: 64 kg

DRUGS (14)
  1. MAGNESIUM [Concomitant]
     Active Substance: MAGNESIUM
     Indication: PRODUCT USED FOR UNKNOWN INDICATION
     Dosage: TWO PER DAY SINCE YEARS
  2. MULTI VITAMIN [Concomitant]
     Active Substance: VITAMINS
     Indication: PRODUCT USED FOR UNKNOWN INDICATION
     Dosage: ONE PER DAY SINCE YEARS
  3. AVEENO ACTIVE NATURALS SMART ESSENTIALS DAILY NOURISHING MOISTURIZER SPF 30 [Suspect]
     Active Substance: AVOBENZONE\HOMOSALATE\OCTISALATE\OCTOCRYLENE\OXYBENZONE
     Indication: PRODUCT USED FOR UNKNOWN INDICATION
     Dosage: FOUR PUMPS AMOUNT ONCE A DAY
     Route: 061
  4. FISH OIL [Concomitant]
     Active Substance: FISH OIL
     Indication: PRODUCT USED FOR UNKNOWN INDICATION
     Dosage: ONE PER DAY SINCE YEARS
  5. AVEENO ACTIVE NATURALS SMART ESSENTIALS DAILY NOURISHING MOISTURIZER SPF 30 [Suspect]
     Active Substance: AVOBENZONE\HOMOSALATE\OCTISALATE\OCTOCRYLENE\OXYBENZONE
     Indication: DRY SKIN PROPHYLAXIS
     Dosage: FOUR PUMPS AMOUNT ONCE A DAY
     Route: 061
  6. CALCIUM [Concomitant]
     Active Substance: CALCIUM
     Indication: PRODUCT USED FOR UNKNOWN INDICATION
     Dosage: TWO PER DAY SINCE YEARS
  7. DILANTIN 100MG [Concomitant]
     Indication: SEIZURE
     Dosage: ONE PER DAY SINCE YEARS
  8. LEVOTHYROXINE 50MG [Concomitant]
     Active Substance: LEVOTHYROXINE
     Indication: THYROID DISORDER
     Dosage: ONE PER DAY SINCE YEARS
  9. METOPROLOL. [Concomitant]
     Active Substance: METOPROLOL
     Indication: HYPERTENSION
     Dosage: ONE PER DAY SINCE YEARS
  10. LOSARTAN. [Concomitant]
     Active Substance: LOSARTAN
     Indication: HYPERTENSION
     Dosage: ONE PER DAY SINCE YEARS
  11. FUROSEMIDE 20MG [Concomitant]
     Active Substance: FUROSEMIDE
     Indication: PRODUCT USED FOR UNKNOWN INDICATION
     Dosage: TWO PER DAY SINCE YEARS
  12. SIMVASTATIN. [Concomitant]
     Active Substance: SIMVASTATIN
     Indication: PRODUCT USED FOR UNKNOWN INDICATION
     Dosage: ONE PER DAY SINCE YEARS
  13. COUMADIN [Concomitant]
     Active Substance: WARFARIN SODIUM
     Indication: ANTICOAGULANT THERAPY
     Dosage: TWO ONE DAY SINCE YEARS
  14. LUTEIN [Concomitant]
     Active Substance: LUTEIN
     Dosage: TWO PER DAY RECENTLY

REACTIONS (2)
  - Precancerous skin lesion [Recovering/Resolving]
  - Product label issue [Unknown]
